FAERS Safety Report 5345620-5 (Version None)
Quarter: 2007Q2

REPORT INFORMATION
  Report Type: 
  Country: None (occurrence: None)
  Receive Date: 20070605
  Receipt Date: 20060504
  Transmission Date: 20071010
  Serious: No
  Sender: FDA-Public Use
  Company Number: US-ASTRAZENECA-2006UW08658

PATIENT
  Age: 84 Year
  Sex: Male

DRUGS (1)
  1. PRILOSEC [Suspect]

REACTIONS (2)
  - PROSTATE EXAMINATION ABNORMAL [None]
  - PROSTATE TENDERNESS [None]
